FAERS Safety Report 6088915-2 (Version None)
Quarter: 2009Q1

REPORT INFORMATION
  Report Type: 
  Country: None (occurrence: None)
  Receive Date: 20090219
  Receipt Date: 20090219
  Transmission Date: 20090719
  Serious: No
  Sender: FDA-Public Use
  Company Number: None

PATIENT
  Age: 73 Year
  Sex: Female
  Weight: 111.1313 kg

DRUGS (1)
  1. GABAPENTIN [Suspect]
     Indication: SCIATICA
     Dosage: 1 PILL EVENINGS
     Dates: start: 20090127, end: 20090201

REACTIONS (2)
  - MUSCLE SPASMS [None]
  - PALPITATIONS [None]
